FAERS Safety Report 8440140-3 (Version None)
Quarter: 2012Q2

REPORT INFORMATION
  Report Type: 
  Country: None (occurrence: None)
  Receive Date: 20120615
  Receipt Date: 20120601
  Transmission Date: 20120825
  Serious: Yes (Hospitalization)
  Sender: FDA-Public Use
  Company Number: US-ACTELION-A-US2011-50345

PATIENT

DRUGS (3)
  1. BOSENTAN [Suspect]
     Indication: PULMONARY ARTERIAL HYPERTENSION
     Dosage: UNK
     Route: 048
     Dates: start: 20051111
  2. PRILOSEC [Concomitant]
  3. SILDENAFIL [Concomitant]
     Indication: PULMONARY ARTERIAL HYPERTENSION
     Dosage: 20 MG, TID
     Route: 048

REACTIONS (2)
  - DIZZINESS [None]
  - FALL [None]
